FAERS Safety Report 5515760-6 (Version None)
Quarter: 2007Q4

REPORT INFORMATION
  Report Type: 
  Country: None (occurrence: None)
  Receive Date: 20071114
  Receipt Date: 20071106
  Transmission Date: 20080405
  Serious: Yes (Hospitalization, Other)
  Sender: FDA-Public Use
  Company Number: PHBS2007JP15061

PATIENT
  Age: 24 Year
  Sex: Male

DRUGS (3)
  1. VOLTAREN [Suspect]
     Indication: PYREXIA
     Dosage: 50 MG/DAY
     Route: 048
     Dates: start: 20070831
  2. MUCOSTA [Concomitant]
     Route: 048
  3. FLOMOX [Concomitant]
     Route: 048

REACTIONS (4)
  - GASTRIC ULCER [None]
  - GASTRIC ULCER SURGERY [None]
  - MELAENA [None]
  - PERITONITIS [None]
